FAERS Safety Report 5040926-1 (Version None)
Quarter: 2006Q2

REPORT INFORMATION
  Report Type: 
  Country: None (occurrence: None)
  Receive Date: 20060601
  Receipt Date: 20060302
  Transmission Date: 20061013
  Serious: Yes (Disabling)
  Sender: FDA-Public Use
  Company Number: 2006PV009549

PATIENT
  Age: 59 Year
  Sex: Female
  Weight: 108.4097 kg

DRUGS (14)
  1. BYETTA [Suspect]
     Indication: DIABETES MELLITUS NON-INSULIN-DEPENDENT
     Dosage: SEE IMAGE
     Route: 058
     Dates: start: 20050901, end: 20050101
  2. BYETTA [Suspect]
     Indication: WEIGHT DECREASED
     Dosage: SEE IMAGE
     Route: 058
     Dates: start: 20050901, end: 20050101
  3. BYETTA [Suspect]
     Indication: DIABETES MELLITUS NON-INSULIN-DEPENDENT
     Dosage: SEE IMAGE
     Route: 058
     Dates: start: 20050101, end: 20051108
  4. BYETTA [Suspect]
     Indication: WEIGHT DECREASED
     Dosage: SEE IMAGE
     Route: 058
     Dates: start: 20050101, end: 20051108
  5. ACTOS [Concomitant]
  6. METFORMIN [Concomitant]
  7. TERAZOSIN HCL [Concomitant]
  8. LISIN/HCTZ 20/125 [Concomitant]
  9. LIPITOR [Concomitant]
  10. NATURES OWN REFLUX FREE OMEGA-3 FISH OIL [Concomitant]
  11. GLUCOSAMINE CHONDROITIN [Concomitant]
  12. MAGNESIUM [Concomitant]
  13. VITAMINS [Concomitant]
  14. NPH INSULIN [Concomitant]

REACTIONS (1)
  - WEIGHT DECREASED [None]
